FAERS Safety Report 24687263 (Version 2)
Quarter: 2025Q1

REPORT INFORMATION
  Report Type: Spontaneous
  Country: US (occurrence: US)
  Receive Date: 20241202
  Receipt Date: 20250312
  Transmission Date: 20250408
  Serious: Yes (Other)
  Sender: EMD SERONO INC
  Company Number: US-Merck Healthcare KGaA-2024062343

PATIENT
  Sex: Female

DRUGS (1)
  1. REBIF [Suspect]
     Active Substance: INTERFERON BETA-1A
     Indication: Multiple sclerosis
     Dosage: (STRENGTH: 44 MCG /0.5ML)
     Dates: start: 202305

REACTIONS (3)
  - Multiple sclerosis relapse [Unknown]
  - Nausea [Unknown]
  - Vomiting [Unknown]
